FAERS Safety Report 23494718 (Version 1)
Quarter: 2024Q1

REPORT INFORMATION
  Report Type: Spontaneous
  Country: CA (occurrence: CA)
  Receive Date: 20240207
  Receipt Date: 20240207
  Transmission Date: 20240409
  Serious: Yes (Hospitalization, Other)
  Sender: FDA-Public Use
  Company Number: CA-SUN PHARMACEUTICAL INDUSTRIES LTD-2024R1-430445

PATIENT
  Age: 70 Year
  Sex: Female

DRUGS (3)
  1. PREDNISONE [Suspect]
     Active Substance: PREDNISONE
     Indication: Chemotherapy
     Dosage: 60 MILLIGRAM
     Route: 065
  2. IRON [Concomitant]
     Active Substance: IRON
     Indication: Chemotherapy
     Dosage: UNK
     Route: 048
  3. FOLIC ACID [Concomitant]
     Active Substance: FOLIC ACID
     Indication: Chemotherapy
     Dosage: UNK
     Route: 048

REACTIONS (1)
  - Therapy non-responder [Unknown]
